FAERS Safety Report 8274286-X (Version None)
Quarter: 2012Q2

REPORT INFORMATION
  Report Type: 
  Country: None (occurrence: None)
  Receive Date: 20120411
  Receipt Date: 20120411
  Transmission Date: 20120825
  Serious: No
  Sender: FDA-Public Use
  Company Number: None

PATIENT
  Age: 74 Year
  Sex: Female
  Weight: 68.038 kg

DRUGS (1)
  1. PREDNISONE [Suspect]
     Indication: DEAFNESS UNILATERAL
     Dosage: 24/DAY DOWN TO 2/DAY

REACTIONS (4)
  - INSOMNIA [None]
  - PANIC ATTACK [None]
  - TREMOR [None]
  - ASTHMA [None]
